FAERS Safety Report 6673337-3 (Version None)
Quarter: 2010Q2

REPORT INFORMATION
  Report Type: 
  Country: None (occurrence: None)
  Receive Date: 20100408
  Receipt Date: 20100331
  Transmission Date: 20101027
  Serious: Yes (Hospitalization)
  Sender: FDA-Public Use
  Company Number: JP-WATSON-2010-00044

PATIENT
  Age: 78 Year
  Sex: Male

DRUGS (10)
  1. RAPAFLO [Suspect]
     Indication: BLADDER OBSTRUCTION
     Dosage: 4 MG, BID
     Route: 048
     Dates: start: 20080111, end: 20081126
  2. ASPIRIN [Concomitant]
     Indication: DRUG USE FOR UNKNOWN INDICATION
     Dosage: 100 MG, PRN
     Route: 048
  3. ADALAT CC [Concomitant]
     Indication: DRUG USE FOR UNKNOWN INDICATION
     Dosage: 20 MG, PRN
     Route: 048
  4. COMELIAN [Concomitant]
     Indication: DRUG USE FOR UNKNOWN INDICATION
     Dosage: 150 MG, PRN
     Route: 048
  5. HACHIMIJIO-GAN [Concomitant]
     Indication: DRUG USE FOR UNKNOWN INDICATION
     Dosage: 7.5 G, PRN
     Route: 048
  6. BASEN OD [Concomitant]
     Indication: DRUG USE FOR UNKNOWN INDICATION
     Dosage: 0.9 MG, PRN
     Route: 048
  7. CANDESARTAN CILEXETIL [Concomitant]
     Indication: DRUG USE FOR UNKNOWN INDICATION
     Dosage: 8 MG, DAILY
     Route: 048
  8. BORRAZA-G [Concomitant]
     Indication: HAEMORRHOIDS
     Dosage: UNK
     Route: 054
  9. FRANDOL S [Concomitant]
     Indication: DRUG USE FOR UNKNOWN INDICATION
     Dosage: 40 MG, DAILY
     Route: 062
  10. VOLTAREN [Concomitant]
     Indication: BACK PAIN
     Dosage: UNK
     Route: 062

REACTIONS (2)
  - DRUG INEFFECTIVE [None]
  - URINARY RETENTION [None]
